FAERS Safety Report 17769459 (Version 3)
Quarter: 2020Q3

REPORT INFORMATION
  Report Type: Spontaneous
  Country: JP (occurrence: JP)
  Receive Date: 20200512
  Receipt Date: 20200727
  Transmission Date: 20201102
  Serious: Yes (Other)
  Sender: FDA-Public Use
  Company Number: JP-009507513-2005JPN000178J

PATIENT
  Age: 89 Year
  Sex: Male

DRUGS (4)
  1. ISENTRESS [Suspect]
     Active Substance: RALTEGRAVIR POTASSIUM
     Indication: HIV INFECTION
     Dosage: 400 MILLIGRAM, BID
     Route: 048
     Dates: start: 2012, end: 20200506
  2. COSENTYX [Concomitant]
     Active Substance: SECUKINUMAB
     Dosage: UNK
     Route: 065
  3. ISENTRESS [Suspect]
     Active Substance: RALTEGRAVIR POTASSIUM
     Dosage: 800 MILLIGRAM, QD
     Route: 048
     Dates: start: 20200507
  4. EPZICOM [Concomitant]
     Active Substance: ABACAVIR SULFATE\LAMIVUDINE
     Indication: HIV INFECTION
     Dosage: 1 DOSAGE FORM, QD
     Route: 048

REACTIONS (3)
  - Cerebral atrophy [Unknown]
  - Lacunar infarction [Unknown]
  - Off label use [Unknown]

NARRATIVE: CASE EVENT DATE: 20200422
